FAERS Safety Report 10202757 (Version 2)
Quarter: 2014Q2

REPORT INFORMATION
  Report Type: Spontaneous
  Country: US (occurrence: US)
  Receive Date: 20140528
  Receipt Date: 20140619
  Transmission Date: 20141212
  Serious: No
  Sender: FDA-Public Use
  Company Number: US-009507513-1404USA006699

PATIENT
  Sex: Female
  Weight: 54.42 kg

DRUGS (4)
  1. OXYTROL FOR WOMEN [Suspect]
     Indication: MICTURITION URGENCY
     Dosage: UNK, UNKNOWN
     Route: 062
     Dates: end: 20140330
  2. AZOR (ALPRAZOLAM) [Concomitant]
     Indication: HYPERTENSION
     Dosage: UNK, UNKNOWN
  3. HYDROXYZINE [Concomitant]
     Indication: PRURITUS
     Dosage: UNK, UNKNOWN
  4. HYDROXYZINE [Concomitant]
     Indication: DRY SKIN

REACTIONS (5)
  - Application site burn [Recovering/Resolving]
  - Skin mass [Recovering/Resolving]
  - Pain of skin [Recovering/Resolving]
  - Application site erythema [Recovered/Resolved]
  - Drug effect decreased [Unknown]
